FAERS Safety Report 8190229-1 (Version None)
Quarter: 2012Q1

REPORT INFORMATION
  Report Type: 
  Country: None (occurrence: None)
  Receive Date: 20120221
  Receipt Date: 20120103
  Transmission Date: 20120608
  Serious: No
  Sender: FDA-Public Use
  Company Number: 1000026684

PATIENT
  Age: 60 Year
  Sex: Male

DRUGS (3)
  1. VIIBRYD [Suspect]
     Indication: DEPRESSION
     Dosage: 10 MG (10 MG,1 IN 1 D),ORAL
     Route: 048
     Dates: start: 20111229
  2. REMERON [Suspect]
     Indication: DEPRESSION
     Dosage: 45 MG (45 MG,1 IN 1 D), 30 MG (30 MG,1 IN 1 D),
     Dates: end: 20111228
  3. REMERON [Suspect]
     Indication: DEPRESSION
     Dosage: 45 MG (45 MG,1 IN 1 D), 30 MG (30 MG,1 IN 1 D),
     Dates: start: 20111229

REACTIONS (4)
  - INSOMNIA [None]
  - ABDOMINAL DISCOMFORT [None]
  - NAUSEA [None]
  - DIARRHOEA [None]
